FAERS Safety Report 13443171 (Version 3)
Quarter: 2017Q2

REPORT INFORMATION
  Report Type: Report from Study
  Country: CN (occurrence: CN)
  Receive Date: 20170414
  Receipt Date: 20170530
  Transmission Date: 20170830
  Serious: Yes (Other)
  Sender: FDA-Public Use
  Company Number: PHHY2017CN053247

PATIENT
  Age: 37 Year
  Sex: Male

DRUGS (82)
  1. MYFORTIC [Suspect]
     Active Substance: MYCOPHENOLATE SODIUM
     Indication: IMMUNOSUPPRESSANT DRUG THERAPY
     Dosage: 1080 MG, QD
     Route: 065
     Dates: start: 20170313, end: 20170323
  2. ESOMEPRAZOLE [Concomitant]
     Active Substance: ESOMEPRAZOLE
     Dosage: 40 MG, BID
     Route: 042
     Dates: start: 20170401, end: 20170411
  3. OMEPRAZOLE. [Concomitant]
     Active Substance: OMEPRAZOLE
     Indication: GASTRITIS PROPHYLAXIS
     Dosage: 40 MG, BID
     Route: 042
     Dates: start: 20170305, end: 20170309
  4. HUMAN ALBUMIN [Concomitant]
     Active Substance: ALBUMIN HUMAN
     Indication: NUTRITIONAL SUPPLEMENTATION
     Dosage: 10 G, QD
     Route: 042
     Dates: start: 20170305
  5. TORASEMIDE [Concomitant]
     Active Substance: TORSEMIDE
     Indication: POLYURIA
     Dosage: 20 MG, QD
     Route: 042
     Dates: start: 20170308, end: 20170309
  6. VITAMIN B6 [Concomitant]
     Active Substance: PYRIDOXINE HYDROCHLORIDE
     Indication: NUTRITIONAL SUPPLEMENTATION
     Dosage: 0.2 G, QD
     Route: 042
     Dates: start: 20170305, end: 20170308
  7. FAT EMULSION NOS [Concomitant]
     Active Substance: EGG PHOSPHOLIPIDS\SAFFLOWER OIL\SOYBEAN OIL
     Dosage: 1440 ML, QD
     Route: 042
     Dates: start: 20170328, end: 20170328
  8. MAGNESIUM SULFATE. [Concomitant]
     Active Substance: MAGNESIUM SULFATE
     Indication: PRODUCT USED FOR UNKNOWN INDICATION
     Dosage: 0.75 G, QD
     Route: 042
     Dates: start: 20170402, end: 20170407
  9. LORNOXICAM [Concomitant]
     Active Substance: LORNOXICAM
     Dosage: 8 MG, QD
     Route: 030
     Dates: start: 20170331, end: 20170331
  10. MYFORTIC [Suspect]
     Active Substance: MYCOPHENOLATE SODIUM
     Dosage: 720 MG, QD
     Route: 065
     Dates: start: 20170324, end: 20170324
  11. METHYLPREDNISOLONE. [Suspect]
     Active Substance: METHYLPREDNISOLONE
     Indication: IMMUNOSUPPRESSANT DRUG THERAPY
     Dosage: 660 MG, QD
     Route: 065
     Dates: start: 20170305, end: 20170305
  12. AMBROXOL HYDROCHLORIDE [Concomitant]
     Active Substance: AMBROXOL HYDROCHLORIDE
     Indication: PRODUCTIVE COUGH
     Dosage: 30 MG, BID
     Route: 042
     Dates: start: 20170305, end: 20170310
  13. FAT EMULSION NOS [Concomitant]
     Active Substance: EGG PHOSPHOLIPIDS\SAFFLOWER OIL\SOYBEAN OIL
     Dosage: 250 ML, QD
     Route: 042
     Dates: start: 20170407, end: 20170409
  14. CALCIUM GLUCONATE. [Concomitant]
     Active Substance: CALCIUM GLUCONATE
     Dosage: 0.7 G, QD
     Route: 042
     Dates: start: 20170402, end: 20170407
  15. TACROLIMUS. [Suspect]
     Active Substance: TACROLIMUS
     Dosage: 3 MG, QD
     Route: 065
     Dates: start: 20170328, end: 20170413
  16. VITAMIIN C [Concomitant]
     Active Substance: ASCORBIC ACID
     Indication: NUTRITIONAL SUPPLEMENTATION
     Dosage: 2 G, QD
     Route: 042
     Dates: start: 20170305, end: 20170308
  17. CLONIDINE HYDROCHLORIDE. [Concomitant]
     Active Substance: CLONIDINE HYDROCHLORIDE
     Indication: BLOOD PRESSURE INCREASED
     Dosage: 150 UG, QD
     Route: 048
     Dates: start: 20170307, end: 20170307
  18. FAT EMULSION NOS [Concomitant]
     Active Substance: EGG PHOSPHOLIPIDS\SAFFLOWER OIL\SOYBEAN OIL
     Indication: PRODUCT USED FOR UNKNOWN INDICATION
     Dosage: 250 ML, BID
     Route: 042
     Dates: start: 20170327, end: 20170328
  19. RECOMBINANT HUMAN ERYTHROPOIETIN [Concomitant]
     Active Substance: ERYTHROPOIETIN
     Indication: ANAEMIA
     Dosage: 10000 IU, QOD
     Route: 042
     Dates: start: 20170309, end: 20170316
  20. CLOPIDOGREL HYDROGEN SULFATE [Concomitant]
     Active Substance: CLOPIDOGREL BISULFATE
     Indication: PROPHYLAXIS
     Dosage: 75 MG, QD
     Route: 048
     Dates: start: 20170409
  21. CALCIUM GLUCONATE. [Concomitant]
     Active Substance: CALCIUM GLUCONATE
     Indication: PRODUCT USED FOR UNKNOWN INDICATION
     Dosage: 1 G, QD
     Route: 042
     Dates: start: 20170306, end: 20170306
  22. MYFORTIC [Suspect]
     Active Substance: MYCOPHENOLATE SODIUM
     Indication: RENAL TRANSPLANT
     Dosage: 1440 MG, QD
     Route: 065
     Dates: start: 20170305, end: 20170312
  23. MYFORTIC [Suspect]
     Active Substance: MYCOPHENOLATE SODIUM
     Dosage: 720 MG, QD
     Route: 065
     Dates: start: 20170408
  24. BASILIXIMAB [Suspect]
     Active Substance: BASILIXIMAB
     Indication: IMMUNOSUPPRESSANT DRUG THERAPY
     Dosage: 20 MG, QD
     Route: 065
     Dates: start: 20170309, end: 20170309
  25. METHYLPREDNISOLONE. [Suspect]
     Active Substance: METHYLPREDNISOLONE
     Dosage: 500 MG, QD
     Route: 065
     Dates: start: 20170306, end: 20170308
  26. ESOMEPRAZOLE [Concomitant]
     Active Substance: ESOMEPRAZOLE
     Dosage: 40 MG, BID
     Route: 042
     Dates: start: 20170309, end: 20170312
  27. PARACETAMOL [Concomitant]
     Active Substance: ACETAMINOPHEN
     Dosage: 1 DF, QD
     Route: 048
     Dates: start: 20170329, end: 20170329
  28. RABEPRAZOLE SODIUM. [Concomitant]
     Active Substance: RABEPRAZOLE SODIUM
     Indication: GASTRITIS PROPHYLAXIS
     Dosage: 20 MG, QD
     Route: 048
     Dates: start: 20170312, end: 20170324
  29. AMBROXOL HYDROCHLORIDE [Concomitant]
     Active Substance: AMBROXOL HYDROCHLORIDE
     Dosage: 30 MG, BID
     Route: 055
     Dates: start: 20170305, end: 20170312
  30. ALANYL GLUTAMINE [Concomitant]
     Active Substance: ALANYL GLUTAMINE
     Indication: PRODUCT USED FOR UNKNOWN INDICATION
     Dosage: 20 G, QD
     Route: 042
     Dates: start: 20170402, end: 20170407
  31. INDOMETACIN [Concomitant]
     Active Substance: INDOMETHACIN
     Indication: PAIN
     Dosage: 50 MG, QD
     Route: 054
     Dates: start: 20170323, end: 20170324
  32. POTASSIUM CHLORIDE. [Concomitant]
     Active Substance: POTASSIUM CHLORIDE
     Indication: PRODUCT USED FOR UNKNOWN INDICATION
     Dosage: 4 G, QD
     Route: 042
     Dates: start: 20170402, end: 20170406
  33. PREDNISONE. [Suspect]
     Active Substance: PREDNISONE
     Dosage: 10 MG, QD
     Route: 065
     Dates: start: 20170328
  34. TANSHINON [Concomitant]
     Indication: POOR PERIPHERAL CIRCULATION
     Dosage: 0.84 G, TID
     Route: 048
     Dates: start: 20170313, end: 20170324
  35. CEFOPERAZONE [Concomitant]
     Active Substance: CEFOPERAZONE
     Indication: PROPHYLAXIS
     Dosage: 2 G, Q12H
     Route: 042
     Dates: start: 20170327
  36. AMBROXOL HYDROCHLORIDE [Concomitant]
     Active Substance: AMBROXOL HYDROCHLORIDE
     Dosage: 30 MG, Q12H
     Route: 042
     Dates: start: 20170401, end: 20170402
  37. PANCREATIN [Concomitant]
     Active Substance: PANCRELIPASE
     Indication: GASTROINTESTINAL DISORDER
     Dosage: 0.15 G, TID
     Route: 048
     Dates: start: 20170323, end: 20170324
  38. FUROSEMIDE. [Concomitant]
     Active Substance: FUROSEMIDE
     Indication: POLYURIA
     Dosage: 100 MG, CONTINUOUSLY
     Route: 042
     Dates: start: 20170306, end: 20170310
  39. SODIUM CHLORIDE. [Concomitant]
     Active Substance: SODIUM CHLORIDE
     Indication: PRODUCT USED FOR UNKNOWN INDICATION
     Dosage: 5 G, QD
     Route: 042
     Dates: start: 20170402, end: 20170406
  40. SODIUM BICARBONATE. [Concomitant]
     Active Substance: SODIUM BICARBONATE
     Indication: PRODUCT USED FOR UNKNOWN INDICATION
     Dosage: 1 G, TID
     Route: 048
     Dates: start: 20170411
  41. SULFUR HEXAFLUORIDE [Concomitant]
     Active Substance: SULFUR HEXAFLUORIDE
     Indication: THERAPEUTIC ASPIRATION
     Dosage: 59 MG, QD
     Route: 042
     Dates: start: 20170410, end: 20170410
  42. CEFOPERAZONE + SULBACTAM [Concomitant]
     Indication: PROPHYLAXIS
     Dosage: 2 G, Q12H
     Route: 042
     Dates: start: 20170401, end: 20170408
  43. INSULIN [Concomitant]
     Active Substance: INSULIN NOS
     Indication: BLOOD GLUCOSE INCREASED
     Dosage: 14 IU, QD
     Route: 042
     Dates: start: 20170328, end: 20170328
  44. MYFORTIC [Suspect]
     Active Substance: MYCOPHENOLATE SODIUM
     Dosage: 360 MG, QD
     Route: 065
     Dates: start: 20170406, end: 20170407
  45. TACROLIMUS. [Suspect]
     Active Substance: TACROLIMUS
     Dosage: 7 MG, QD
     Route: 065
     Dates: start: 20170314, end: 20170327
  46. AMOXICILLIN. [Concomitant]
     Active Substance: AMOXICILLIN
     Dosage: 1.2 G, BID
     Route: 042
     Dates: start: 20170323, end: 20170327
  47. OCTREOTIDE ACETATE. [Concomitant]
     Active Substance: OCTREOTIDE ACETATE
     Indication: PRODUCT USED FOR UNKNOWN INDICATION
     Dosage: 0.1 MG, Q8H
     Route: 042
     Dates: start: 20170327
  48. PARACETAMOL [Concomitant]
     Active Substance: ACETAMINOPHEN
     Indication: CONSTIPATION
     Dosage: 1 DF, BID
     Route: 048
     Dates: start: 20170322, end: 20170322
  49. IPRATROPIUM BROMIDE. [Concomitant]
     Active Substance: IPRATROPIUM BROMIDE
     Indication: PRODUCTIVE COUGH
     Dosage: 2 ML, BID
     Route: 055
     Dates: start: 20170323
  50. REBAMIPIDE [Concomitant]
     Active Substance: REBAMIPIDE
     Indication: GASTRITIS PROPHYLAXIS
     Dosage: 0.1 G, TID
     Route: 048
     Dates: start: 20170409
  51. PARAFFIN OIL [Concomitant]
     Indication: CONSTIPATION
     Dosage: 30 ML, TID (FEEDING VIA NASOGASTRIC TUBE)
     Route: 050
     Dates: start: 20170405
  52. PARAFFIN OIL [Concomitant]
     Dosage: 30 ML, TID
     Route: 048
     Dates: start: 20170407, end: 20170411
  53. INDOMETACIN [Concomitant]
     Active Substance: INDOMETHACIN
     Dosage: 50 MG, QD
     Route: 054
     Dates: start: 20170327, end: 20170327
  54. BASILIXIMAB [Suspect]
     Active Substance: BASILIXIMAB
     Indication: RENAL TRANSPLANT
     Dosage: 20 MG, QD
     Route: 065
     Dates: start: 20170305, end: 20170305
  55. PREDNISONE. [Suspect]
     Active Substance: PREDNISONE
     Indication: IMMUNOSUPPRESSANT DRUG THERAPY
     Dosage: 80 MG, QD
     Route: 065
     Dates: start: 20170308, end: 20170308
  56. PREDNISONE. [Suspect]
     Active Substance: PREDNISONE
     Dosage: 40 MG, QD
     Route: 065
     Dates: start: 20170310, end: 20170310
  57. PREDNISONE. [Suspect]
     Active Substance: PREDNISONE
     Dosage: 20 MG, QD
     Route: 065
     Dates: start: 20170311, end: 20170327
  58. LEVAMLODIPINE BESILATE [Concomitant]
     Active Substance: LEVAMLODIPINE BESYLATE
     Indication: BLOOD PRESSURE INCREASED
     Dosage: 2.5 MG, BID
     Route: 048
     Dates: start: 20170307, end: 20170319
  59. DOPAMINE [Concomitant]
     Active Substance: DOPAMINE\DOPAMINE HYDROCHLORIDE
     Indication: CAPILLARY DISORDER
     Dosage: 100 MG, CONTINUOUSLY
     Route: 042
     Dates: start: 20170305, end: 20170310
  60. GLUTATHIONE [Concomitant]
     Active Substance: GLUTATHIONE
     Dosage: 1.8 G, QD
     Route: 042
     Dates: start: 20170306, end: 20170314
  61. HUMAN ALBUMIN [Concomitant]
     Active Substance: ALBUMIN HUMAN
     Dosage: 10 G, QD
     Route: 042
     Dates: start: 20170324
  62. LANSOPRAZOLE. [Concomitant]
     Active Substance: LANSOPRAZOLE
     Indication: GASTRITIS PROPHYLAXIS
     Dosage: 30 ML, BID (INJECTION)
     Route: 042
     Dates: start: 20170324
  63. LANSOPRAZOLE. [Concomitant]
     Active Substance: LANSOPRAZOLE
     Dosage: 30 MG, BID (ENTERIC-COATED CAPSULES)
     Route: 048
     Dates: start: 20170411
  64. INSULIN [Concomitant]
     Active Substance: INSULIN NOS
     Dosage: 50 IU, QD
     Route: 042
     Dates: start: 20170402
  65. PREDNISONE. [Suspect]
     Active Substance: PREDNISONE
     Dosage: 60 MG, QD
     Route: 065
     Dates: start: 20170309, end: 20170309
  66. TACROLIMUS. [Suspect]
     Active Substance: TACROLIMUS
     Indication: IMMUNOSUPPRESSANT DRUG THERAPY
     Dosage: 3 MG, QD
     Route: 065
     Dates: start: 20170308, end: 20170310
  67. TACROLIMUS. [Suspect]
     Active Substance: TACROLIMUS
     Dosage: 6 MG, QD
     Route: 065
     Dates: start: 20170311, end: 20170313
  68. TACROLIMUS. [Suspect]
     Active Substance: TACROLIMUS
     Dosage: 4 MG, QD
     Route: 065
     Dates: start: 20170414
  69. AMOXICILLIN. [Concomitant]
     Active Substance: AMOXICILLIN
     Indication: PRODUCT USED FOR UNKNOWN INDICATION
     Dosage: 1.2 G, BID
     Route: 042
     Dates: start: 20170305, end: 20170313
  70. ESOMEPRAZOLE [Concomitant]
     Active Substance: ESOMEPRAZOLE
     Indication: GASTRITIS PROPHYLAXIS
     Dosage: 40 MG, QD
     Route: 042
     Dates: start: 20170305, end: 20170305
  71. TANSHINON [Concomitant]
     Dosage: 0.84 G, TID
     Route: 048
     Dates: start: 20170409
  72. MANNITOL. [Concomitant]
     Active Substance: MANNITOL
     Indication: POLYURIA
     Dosage: 125 ML, QD
     Route: 042
     Dates: start: 20170305, end: 20170305
  73. MANNITOL. [Concomitant]
     Active Substance: MANNITOL
     Indication: DEHYDRATION
  74. GANCICLOVIR. [Concomitant]
     Active Substance: GANCICLOVIR
     Indication: ANTIVIRAL PROPHYLAXIS
     Dosage: 300 MG, BID
     Route: 042
     Dates: start: 20170312, end: 20170325
  75. GLUTATHIONE [Concomitant]
     Active Substance: GLUTATHIONE
     Indication: PROPHYLAXIS
     Dosage: 1.8 G, QD
     Route: 042
     Dates: start: 20170305, end: 20170306
  76. BUDESONIDE. [Concomitant]
     Active Substance: BUDESONIDE
     Indication: PRODUCTIVE COUGH
     Dosage: 4 ML, BID
     Route: 055
     Dates: start: 20170323
  77. DILTIAZEM HYDROCHLORIDE. [Concomitant]
     Active Substance: DILTIAZEM HYDROCHLORIDE
     Indication: BLOOD PRESSURE INCREASED
     Dosage: 30 MG, BID
     Route: 048
     Dates: start: 20170308
  78. SOMATOSTATIN [Concomitant]
     Active Substance: SOMATOSTATIN
     Indication: PRODUCT USED FOR UNKNOWN INDICATION
     Dosage: 3 MG, Q12H, INTRAVENOUS VIA MICROPUMP
     Route: 042
     Dates: start: 20170324
  79. LORNOXICAM [Concomitant]
     Active Substance: LORNOXICAM
     Indication: PAIN
     Dosage: 8 MG, QD
     Route: 030
     Dates: start: 20170320, end: 20170320
  80. INDOMETACIN [Concomitant]
     Active Substance: INDOMETHACIN
     Dosage: 50 MG, QD
     Route: 054
     Dates: start: 20170329, end: 20170329
  81. LEVOFLOXACIN. [Concomitant]
     Active Substance: LEVOFLOXACIN
     Indication: PROPHYLAXIS
     Dosage: 0.5 G, QD
     Route: 048
     Dates: start: 20170410
  82. SULFAMETHOXAZOLE [Concomitant]
     Active Substance: SULFAMETHOXAZOLE
     Indication: PROPHYLAXIS
     Dosage: 0.5 DF, BID
     Route: 048
     Dates: start: 20170411

REACTIONS (13)
  - Lymphocyte count decreased [Unknown]
  - Haemoglobin decreased [Unknown]
  - White blood cell count increased [Unknown]
  - Intestinal obstruction [Recovering/Resolving]
  - Incision site infection [Recovering/Resolving]
  - C-reactive protein increased [Unknown]
  - Blood triglycerides increased [Unknown]
  - Red blood cells urine positive [Unknown]
  - Neutrophil count increased [Unknown]
  - Blood albumin decreased [Unknown]
  - Blood glucose increased [Unknown]
  - Protein urine present [Unknown]
  - Incision site pain [Recovering/Resolving]

NARRATIVE: CASE EVENT DATE: 20170306
